FAERS Safety Report 7463834-5 (Version None)
Quarter: 2011Q2

REPORT INFORMATION
  Report Type: 
  Country: None (occurrence: None)
  Receive Date: 20110506
  Receipt Date: 20110425
  Transmission Date: 20111010
  Serious: Yes (Other)
  Sender: FDA-Public Use
  Company Number: US-JNJFOC-20110412582

PATIENT
  Sex: Male

DRUGS (2)
  1. ZYRTEC [Suspect]
     Route: 048
  2. ZYRTEC [Suspect]
     Indication: EAR DISORDER
     Route: 048

REACTIONS (8)
  - CONDITION AGGRAVATED [None]
  - BALANCE DISORDER [None]
  - OFF LABEL USE [None]
  - HYPERACUSIS [None]
  - IRRITABILITY [None]
  - NAUSEA [None]
  - DISTURBANCE IN ATTENTION [None]
  - IMPAIRED WORK ABILITY [None]
